FAERS Safety Report 23404070 (Version 9)
Quarter: 2024Q4

REPORT INFORMATION
  Report Type: Spontaneous
  Country: US (occurrence: US)
  Receive Date: 20240116
  Receipt Date: 20241029
  Transmission Date: 20250114
  Serious: Yes (Other)
  Sender: BRISTOL-MYERS SQUIBB COMPANY
  Company Number: US-BRISTOL-MYERS SQUIBB COMPANY-2024-006945

PATIENT
  Age: 76 Year
  Sex: Female

DRUGS (3)
  1. REVLIMID [Suspect]
     Active Substance: LENALIDOMIDE
     Indication: Plasma cell myeloma
     Route: 048
  2. REVLIMID [Suspect]
     Active Substance: LENALIDOMIDE
  3. REVLIMID [Suspect]
     Active Substance: LENALIDOMIDE
     Route: 048

REACTIONS (15)
  - Hot flush [Unknown]
  - Off label use [Unknown]
  - Diarrhoea [Unknown]
  - Palpitations [Unknown]
  - Peripheral swelling [Unknown]
  - Vision blurred [Unknown]
  - Back pain [Unknown]
  - Melanocytic naevus [Unknown]
  - Fatigue [Unknown]
  - Abnormal faeces [Unknown]
  - Skin disorder [Unknown]
  - Mobility decreased [Unknown]
  - Aphthous ulcer [Unknown]
  - Cardiac flutter [Unknown]
  - Nasopharyngitis [Unknown]
